FAERS Safety Report 14911337 (Version 2)
Quarter: 2018Q4

REPORT INFORMATION
  Report Type: Spontaneous
  Country: US (occurrence: US)
  Receive Date: 20180518
  Receipt Date: 20181123
  Transmission Date: 20190204
  Serious: Yes (Other)
  Sender: FDA-Public Use
  Company Number: US-TAKEDA-2018TUS017032

PATIENT

DRUGS (10)
  1. ASPIRIN                            /00002701/ [Concomitant]
     Active Substance: ASPIRIN
     Indication: NASOPHARYNGITIS
  2. ASPIRIN                            /00002701/ [Concomitant]
     Active Substance: ASPIRIN
     Indication: INFLUENZA
  3. MUCINEX [Concomitant]
     Active Substance: GUAIFENESIN
     Indication: COUGH
  4. LISINOPRIL. [Concomitant]
     Active Substance: LISINOPRIL
     Indication: HYPERTENSION
     Dosage: UNK
  5. PREVACID [Suspect]
     Active Substance: LANSOPRAZOLE
     Indication: OESOPHAGITIS
     Dosage: 30 MG, QD
     Route: 048
     Dates: start: 2003, end: 2009
  6. MOTRIN [Concomitant]
     Active Substance: IBUPROFEN
     Indication: MUSCLE SPASMS
  7. IBUPROFEN. [Concomitant]
     Active Substance: IBUPROFEN
     Indication: HEADACHE
  8. ADVIL (MEFENAMIC ACID) [Concomitant]
     Active Substance: MEFENAMIC ACID
     Indication: NASOPHARYNGITIS
  9. CORICIDIN                          /00070002/ [Concomitant]
     Indication: PAIN
  10. ADVIL (MEFENAMIC ACID) [Concomitant]
     Active Substance: MEFENAMIC ACID
     Indication: INFLUENZA

REACTIONS (1)
  - Chronic kidney disease [Not Recovered/Not Resolved]

NARRATIVE: CASE EVENT DATE: 2014
